FAERS Safety Report 9518540 (Version 2)
Quarter: 2013Q3

REPORT INFORMATION
  Report Type: Spontaneous
  Country: BR (occurrence: BR)
  Receive Date: 20130912
  Receipt Date: 20130912
  Transmission Date: 20140515
  Serious: Yes (Other)
  Sender: FDA-Public Use
  Company Number: PHHY2013BR039336

PATIENT
  Age: 43 Year
  Sex: Female
  Weight: 56 kg

DRUGS (6)
  1. SANDIMMUN NEORAL / OL [Suspect]
     Indication: UVEITIS
     Dosage: 25 MG, BID (25 MG, 2 CAPSULES PER DAY)
     Route: 048
     Dates: start: 201204, end: 201212
  2. SANDIMMUN NEORAL / OL [Suspect]
     Dosage: 100 MG, (50 MG, 2 CAPSULES PER DAY)
     Route: 048
     Dates: start: 201212, end: 201304
  3. SANDIMMUN NEORAL / OL [Suspect]
     Dosage: 200 MG, (50 MG 4 CAPSULES PER DAY)
     Route: 048
     Dates: start: 201304
  4. PRELONE [Concomitant]
     Indication: INFLAMMATION
     Dosage: 2.5 MG, DAILY
     Route: 048
     Dates: start: 201304
  5. ANTIBIOTICS [Concomitant]
  6. ATROPINE [Concomitant]
     Indication: MYDRIASIS

REACTIONS (7)
  - Cataract [Recovering/Resolving]
  - Intraocular pressure increased [Recovered/Resolved]
  - Visual acuity reduced [Recovering/Resolving]
  - Eye pain [Recovering/Resolving]
  - Photophobia [Recovering/Resolving]
  - Vision blurred [Recovering/Resolving]
  - Drug ineffective [Unknown]
